FAERS Safety Report 25918256 (Version 2)
Quarter: 2025Q4

REPORT INFORMATION
  Report Type: Spontaneous
  Country: EU (occurrence: EU)
  Receive Date: 20251014
  Receipt Date: 20251018
  Transmission Date: 20260117
  Serious: Yes (Death, Life-Threatening, Hospitalization)
  Sender: MACLEODS
  Company Number: EU-MACLEODS PHARMA-MAC2025055763

PATIENT

DRUGS (1)
  1. METFORMIN [Suspect]
     Active Substance: METFORMIN HYDROCHLORIDE
     Indication: Type 2 diabetes mellitus
     Route: 065

REACTIONS (9)
  - Respiratory failure [Fatal]
  - Visceral congestion [Fatal]
  - Pulmonary oedema [Fatal]
  - Vomiting [Fatal]
  - Dysuria [Fatal]
  - Renal impairment [Fatal]
  - Toxicity to various agents [Fatal]
  - Ketoacidosis [Fatal]
  - Lactic acidosis [Fatal]
